FAERS Safety Report 7279634-5 (Version None)
Quarter: 2011Q1

REPORT INFORMATION
  Report Type: 
  Country: None (occurrence: None)
  Receive Date: 20110203
  Receipt Date: 20110203
  Transmission Date: 20110831
  Serious: Yes (Hospitalization)
  Sender: FDA-Public Use
  Company Number: None

PATIENT
  Sex: Female
  Weight: 56.7 kg

DRUGS (2)
  1. PAZOPANIB [Suspect]
     Indication: ADRENAL CARCINOMA
     Dosage: 200 MG PO DAILY
     Route: 048
     Dates: start: 20101006, end: 20110126
  2. TEMSIROLIMUS [Suspect]
     Indication: ADRENAL CARCINOMA
     Dosage: 10MG IV WEEKLY
     Route: 042
     Dates: start: 20101006, end: 20110120

REACTIONS (4)
  - BLOOD PRESSURE DECREASED [None]
  - ARTHRALGIA [None]
  - PYREXIA [None]
  - INFECTION [None]
